FAERS Safety Report 14259707 (Version 1)
Quarter: 2017Q4

REPORT INFORMATION
  Report Type: Report from Study
  Country: BR (occurrence: BR)
  Receive Date: 20171207
  Receipt Date: 20171207
  Transmission Date: 20180321
  Serious: Yes (Death, Hospitalization)
  Sender: FDA-Public Use
  Company Number: BR-B.I. PHARMACEUTICALS,INC./RIDGEFIELD-2016-BI-087199

PATIENT
  Age: 75 Year
  Sex: Female
  Weight: 35 kg

DRUGS (14)
  1. AAS [Concomitant]
     Active Substance: ASPIRIN
     Indication: CAROTID ARTERY DISEASE
     Route: 048
  2. LIPTOR (ATORVASTATINA) [Concomitant]
     Indication: BLOOD CHOLESTEROL INCREASED
     Route: 048
     Dates: start: 2003
  3. BRIMATOPROSTA [Concomitant]
     Indication: GLAUCOMA
     Route: 031
     Dates: start: 1987
  4. OFEV [Suspect]
     Active Substance: NINTEDANIB
     Route: 048
     Dates: start: 20161219
  5. TARTARATO DE BRIMONIDINA [Concomitant]
     Indication: GLAUCOMA
     Route: 031
  6. CLORIDRATO DE DORZOLAMIDA [Concomitant]
     Indication: GLAUCOMA
     Route: 031
  7. SINVASTATINA [Concomitant]
     Active Substance: SIMVASTATIN
     Indication: BLOOD CHOLESTEROL INCREASED
     Route: 048
  8. OFEV [Suspect]
     Active Substance: NINTEDANIB
     Route: 048
     Dates: start: 20161027
  9. LOSARTANA [Concomitant]
     Active Substance: LOSARTAN
     Indication: HYPERTENSION
     Route: 048
  10. LOSARTANA [Concomitant]
     Active Substance: LOSARTAN
     Route: 048
  11. DORFLEX [Concomitant]
     Active Substance: CAFFEINE\DIPYRONE\ORPHENADRINE
     Indication: HEADACHE
     Route: 048
     Dates: start: 1986
  12. AAS [Concomitant]
     Active Substance: ASPIRIN
     Indication: VEIN DISORDER
     Route: 048
  13. LEVOTIROXINA (LEVOTHYROXINE SODIUM) [Concomitant]
     Active Substance: LEVOTHYROXINE SODIUM
     Indication: THYROID DISORDER
     Route: 048
  14. OFEV [Suspect]
     Active Substance: NINTEDANIB
     Indication: IDIOPATHIC PULMONARY FIBROSIS
     Route: 048
     Dates: start: 20161024

REACTIONS (15)
  - Blood pressure decreased [Recovered/Resolved]
  - Feeding disorder [Recovered/Resolved]
  - Cough [Not Recovered/Not Resolved]
  - Weight decreased [Not Recovered/Not Resolved]
  - Vitamin B12 decreased [Not Recovered/Not Resolved]
  - Adverse drug reaction [Unknown]
  - Abdominal pain [Not Recovered/Not Resolved]
  - Asthenia [Not Recovered/Not Resolved]
  - Malnutrition [Fatal]
  - Idiopathic pulmonary fibrosis [Not Recovered/Not Resolved]
  - Bedridden [Not Recovered/Not Resolved]
  - Headache [Not Recovered/Not Resolved]
  - Dizziness [Not Recovered/Not Resolved]
  - Cough [Not Recovered/Not Resolved]
  - Diarrhoea [Not Recovered/Not Resolved]

NARRATIVE: CASE EVENT DATE: 20161026
